FAERS Safety Report 21021573 (Version 2)
Quarter: 2022Q3

REPORT INFORMATION
  Report Type: Spontaneous
  Country: JP (occurrence: JP)
  Receive Date: 20220629
  Receipt Date: 20220721
  Transmission Date: 20221027
  Serious: Yes (Hospitalization, Other)
  Sender: FDA-Public Use
  Company Number: JP-ADVANZ PHARMA-202206003845

PATIENT

DRUGS (26)
  1. ZONISAMIDE [Suspect]
     Active Substance: ZONISAMIDE
     Indication: Parkinson^s disease
     Dosage: 50 MG, QD (TRERIEF ORODISPERSIBLE TABLET)
     Route: 048
     Dates: start: 202105
  2. ZONISAMIDE [Suspect]
     Active Substance: ZONISAMIDE
     Indication: Therapeutic response shortened
  3. ZONISAMIDE [Suspect]
     Active Substance: ZONISAMIDE
     Indication: Tremor
  4. DONEPEZIL HYDROCHLORIDE [Suspect]
     Active Substance: DONEPEZIL HYDROCHLORIDE
     Indication: Product used for unknown indication
     Dosage: 5 MG, QD
     Route: 048
     Dates: start: 202202
  5. DROXIDOPA [Suspect]
     Active Substance: DROXIDOPA
     Indication: Product used for unknown indication
     Dosage: 300 MG, QD
     Route: 048
  6. CARBIDOPA\LEVODOPA [Suspect]
     Active Substance: CARBIDOPA\LEVODOPA
     Indication: Parkinson^s disease
     Dosage: 450 MG, QD
     Route: 048
  7. BETAHISTINE MESILATE [Suspect]
     Active Substance: BETAHISTINE MESILATE
     Indication: Product used for unknown indication
     Dosage: 18 MG, QD
     Route: 048
  8. RIVOTRIL [Suspect]
     Active Substance: CLONAZEPAM
     Indication: Product used for unknown indication
     Dosage: 0.5 MG, QD (ORAL DRUG UNSPECIFIED FORM)
     Route: 048
  9. BROTIZOLAM [Suspect]
     Active Substance: BROTIZOLAM
     Indication: Product used for unknown indication
     Dosage: 0.25 MG, QD
     Route: 048
  10. ROTIGOTINE [Suspect]
     Active Substance: ROTIGOTINE
     Indication: Parkinson^s disease
     Dosage: 13.5 MG, QD
     Route: 062
  11. ROTIGOTINE [Suspect]
     Active Substance: ROTIGOTINE
     Dosage: 36 MG, QD
     Route: 062
  12. ROTIGOTINE [Suspect]
     Active Substance: ROTIGOTINE
     Dosage: 18 MG, QD
     Route: 062
  13. ROTIGOTINE [Suspect]
     Active Substance: ROTIGOTINE
     Dosage: 16 MG
  14. DISTIGMINE BROMIDE [Suspect]
     Active Substance: DISTIGMINE BROMIDE
     Indication: Product used for unknown indication
     Dosage: 5 MG, QD
     Route: 048
  15. FLORINEF ACETATE [Suspect]
     Active Substance: FLUDROCORTISONE ACETATE
     Indication: Product used for unknown indication
     Dosage: 0.1 MG, QD
     Route: 048
  16. DAYVIGO [Suspect]
     Active Substance: LEMBOREXANT
     Indication: Product used for unknown indication
     Dosage: 5 MG, QD (1 TABLET (BEFORE BEDTIME) )
     Route: 048
  17. DAYVIGO [Suspect]
     Active Substance: LEMBOREXANT
     Indication: Insomnia
  18. ONGENTYS [Suspect]
     Active Substance: OPICAPONE
     Indication: Parkinson^s disease
     Dosage: 5 MG, QD
     Route: 048
  19. ONGENTYS [Suspect]
     Active Substance: OPICAPONE
     Dosage: 25 MG, QD (1 TABLET (BEFORE BEDTIME; RESUMED))
     Route: 048
  20. DOMPERIDONE [Suspect]
     Active Substance: DOMPERIDONE
     Indication: Constipation
     Dosage: 30 MG, QD (3 TABLETS (BEFORE EACH MEAL) )
     Route: 065
  21. HERBALS [Suspect]
     Active Substance: HERBALS
     Indication: Constipation
     Dosage: 6 DOSAGE FORM, QD (ORAL DRUG UNSPECIFIED FORM; (BEFORE EACH MEAL) )
     Route: 048
  22. DANTRIUM [Suspect]
     Active Substance: DANTROLENE SODIUM
     Indication: Neuroleptic malignant syndrome
     Dosage: 75 MG, QD (3 CAPSULES (BEFORE EACH MEAL))
     Route: 065
  23. DANTRIUM [Suspect]
     Active Substance: DANTROLENE SODIUM
     Dosage: 150 MG, QD (WAS INCREASED TO 6 CAPSULES)
     Route: 065
  24. VITAMIN E PREPARATIONS [Concomitant]
     Indication: Hepatic steatosis
     Dosage: 3 DOSAGE FORM (BEFORE EACH MEAL)
  25. MOSAPRIDE CITRATE [Concomitant]
     Active Substance: MOSAPRIDE CITRATE
     Dosage: 3 DOSAGE FORM (TABLETS BEFORE EACH MEAL)
  26. AMEZINIUM METILSULFATE [Concomitant]
     Active Substance: AMEZINIUM METILSULFATE
     Indication: Orthostatic hypotension
     Dosage: 1 DOSAGE FORM (BEFORE EACH MEAL)

REACTIONS (15)
  - Neuroleptic malignant syndrome [Unknown]
  - Hallucination [Unknown]
  - Delusion [Unknown]
  - Hallucination [Unknown]
  - Akinesia [Unknown]
  - Muscle rigidity [Unknown]
  - Hepatic steatosis [Unknown]
  - Blood creatine phosphokinase increased [Unknown]
  - Dysphagia [Recovered/Resolved]
  - Dysphagia [Recovered/Resolved]
  - Orthostatic hypotension [Unknown]
  - Constipation [Unknown]
  - Insomnia [Unknown]
  - Tremor [Recovering/Resolving]
  - Therapeutic response shortened [Recovering/Resolving]

NARRATIVE: CASE EVENT DATE: 20210901
